FAERS Safety Report 5398289-8 (Version None)
Quarter: 2007Q3

REPORT INFORMATION
  Report Type: 
  Country: None (occurrence: None)
  Receive Date: 20070724
  Receipt Date: 20070719
  Transmission Date: 20080115
  Serious: No
  Sender: FDA-Public Use
  Company Number: 20073881

PATIENT
  Age: 53 Year
  Sex: Male

DRUGS (4)
  1. LIORESAL [Suspect]
     Indication: MUSCLE SPASTICITY
     Dosage: 131.99 MCG, DAILY, INTRATHECAL
     Route: 037
  2. HYDROMORPHONE HCL [Concomitant]
  3. CLONIDINE [Concomitant]
  4. BUPIVACAINE [Concomitant]

REACTIONS (2)
  - CATHETER RELATED COMPLICATION [None]
  - GRANULOMA [None]
